FAERS Safety Report 9529496 (Version 1)
Quarter: 2013Q3

REPORT INFORMATION
  Report Type: Spontaneous
  Country: FR (occurrence: FR)
  Receive Date: 20130917
  Receipt Date: 20130917
  Transmission Date: 20140515
  Serious: Yes (Death, Hospitalization)
  Sender: FDA-Public Use
  Company Number: FR-SANOFI-AVENTIS-2013SA090400

PATIENT
  Age: 59 Year
  Sex: Female

DRUGS (5)
  1. OXALIPLATIN [Suspect]
     Indication: ADENOCARCINOMA OF COLON
     Dosage: HIPEC VIA OPEN ABDOMEN TECHNIQUE AT 43 DEGREE CELSIUS
     Route: 033
     Dates: start: 200611, end: 200611
  2. ANTIBIOTICS [Concomitant]
     Dosage: EVERY 2 H DURING SURGERY
     Dates: start: 200611, end: 200611
  3. LEUCOVORIN [Concomitant]
     Indication: ADENOCARCINOMA OF COLON
     Dosage: ONE H BEFORE HIPEC
     Route: 042
     Dates: start: 200611, end: 200611
  4. FLUOROURACIL [Concomitant]
     Indication: ADENOCARCINOMA OF COLON
     Dosage: ONE H BEFORE HIPEC
     Route: 042
     Dates: start: 200611, end: 200611
  5. HEPARIN [Concomitant]
     Indication: PROPHYLAXIS
     Dosage: FRACTIONATED
     Dates: start: 200611

REACTIONS (19)
  - Histiocytosis haematophagic [Fatal]
  - Off label use [Fatal]
  - Thrombocytopenia [Fatal]
  - Pyrexia [Fatal]
  - Splenomegaly [Fatal]
  - Anaemia [Fatal]
  - White blood cell count decreased [Fatal]
  - Serum ferritin increased [Fatal]
  - Blood fibrinogen decreased [Fatal]
  - Fibrin degradation products increased [Fatal]
  - Blood lactate dehydrogenase increased [Fatal]
  - Hepatic haematoma [Fatal]
  - Ascites [Fatal]
  - Histiocytosis [Fatal]
  - Shock haemorrhagic [Fatal]
  - Sepsis [Fatal]
  - Multi-organ failure [Fatal]
  - Acute respiratory distress syndrome [Fatal]
  - Pulmonary alveolar haemorrhage [Fatal]
